FAERS Safety Report 6738082-4 (Version None)
Quarter: 2010Q2

REPORT INFORMATION
  Report Type: 
  Country: None (occurrence: None)
  Receive Date: 20100520
  Receipt Date: 20100507
  Transmission Date: 20101027
  Serious: Yes (Death)
  Sender: FDA-Public Use
  Company Number: 2010AP000969

PATIENT
  Age: 48 Year
  Sex: Male

DRUGS (3)
  1. FLUOXETINE HYDROCHLORIDE [Suspect]
  2. OXYMORPHONE [Concomitant]
  3. CHLORDIAZEPOXIDE [Suspect]

REACTIONS (4)
  - ALCOHOL POISONING [None]
  - DRUG ABUSE [None]
  - DRUG TOXICITY [None]
  - PULMONARY CONGESTION [None]
